FAERS Safety Report 13475852 (Version 1)
Quarter: 2017Q2

REPORT INFORMATION
  Report Type: Spontaneous
  Country: US (occurrence: US)
  Receive Date: 20170425
  Receipt Date: 20170425
  Transmission Date: 20170830
  Serious: Yes (Other)
  Sender: FDA-Public Use
  Company Number: US-009507513-1704USA011098

PATIENT
  Sex: Female
  Weight: 68.48 kg

DRUGS (1)
  1. NEXPLANON [Suspect]
     Active Substance: ETONOGESTREL
     Indication: CONTRACEPTION
     Dosage: 3 YEARS
     Dates: start: 20150518

REACTIONS (13)
  - Pain in extremity [Unknown]
  - Mood swings [Unknown]
  - Nervousness [Unknown]
  - Dizziness [Unknown]
  - Headache [Unknown]
  - Nausea [Unknown]
  - Back pain [Unknown]
  - Unintended pregnancy [Unknown]
  - Depressed mood [Unknown]
  - Pregnancy with implant contraceptive [Unknown]
  - Depression [Unknown]
  - Menorrhagia [Unknown]
  - Dysmenorrhoea [Unknown]
